FAERS Safety Report 18188858 (Version 6)
Quarter: 2021Q2

REPORT INFORMATION
  Report Type: Spontaneous
  Country: JP (occurrence: JP)
  Receive Date: 20200824
  Receipt Date: 20210604
  Transmission Date: 20210717
  Serious: Yes (Hospitalization, Other)
  Sender: FDA-Public Use
  Company Number: JP-OTSUKA-2020_020186

PATIENT
  Age: 83 Year
  Sex: Male

DRUGS (9)
  1. NEXIUM [Concomitant]
     Active Substance: ESOMEPRAZOLE MAGNESIUM
     Indication: PRODUCT USED FOR UNKNOWN INDICATION
     Dosage: 20MG/DAY
     Route: 048
  2. OLMETEC [Concomitant]
     Active Substance: OLMESARTAN MEDOXOMIL
     Indication: PRODUCT USED FOR UNKNOWN INDICATION
     Dosage: 10 MG/DAY
     Route: 048
  3. ALLOPURINOL. [Concomitant]
     Active Substance: ALLOPURINOL
     Indication: PRODUCT USED FOR UNKNOWN INDICATION
     Dosage: 200 MG/DAY
     Route: 048
  4. REBAMIPIDE [Concomitant]
     Active Substance: REBAMIPIDE
     Indication: PRODUCT USED FOR UNKNOWN INDICATION
     Dosage: 100 MG, TID
     Route: 048
  5. SAMSCA [Suspect]
     Active Substance: TOLVAPTAN
     Indication: CARDIAC FAILURE
     Dosage: 15 MG, QD
     Route: 048
     Dates: start: 20200630, end: 20200813
  6. SAMSCA [Suspect]
     Active Substance: TOLVAPTAN
     Indication: HYPERTROPHIC CARDIOMYOPATHY
  7. ELIQUIS [Concomitant]
     Active Substance: APIXABAN
     Indication: PRODUCT USED FOR UNKNOWN INDICATION
     Dosage: 2.5 MG, BID
     Route: 048
  8. MAINTATE [Concomitant]
     Active Substance: BISOPROLOL FUMARATE
     Indication: PRODUCT USED FOR UNKNOWN INDICATION
     Dosage: 5 MG/DAY
     Route: 048
  9. FUROSEMIDE. [Concomitant]
     Active Substance: FUROSEMIDE
     Indication: PRODUCT USED FOR UNKNOWN INDICATION
     Dosage: 40 MG/DAY
     Route: 048

REACTIONS (2)
  - Hyperglycaemic hyperosmolar nonketotic syndrome [Recovered/Resolved]
  - Diabetic ketoacidosis [Unknown]

NARRATIVE: CASE EVENT DATE: 20200812
